FAERS Safety Report 4495982-6 (Version None)
Quarter: 2004Q4

REPORT INFORMATION
  Report Type: 
  Country: None (occurrence: None)
  Receive Date: 20041108
  Receipt Date: 20040830
  Transmission Date: 20050328
  Serious: Yes (Hospitalization, Other)
  Sender: FDA-Public Use
  Company Number: PHEH2004US09441

PATIENT
  Age: 81 Year
  Sex: Female

DRUGS (4)
  1. DIOVAN [Suspect]
     Indication: HYPERTENSION
     Dosage: 80 MG, QD
     Route: 048
     Dates: start: 20000907, end: 20040701
  2. LESCOL XL [Concomitant]
     Indication: DYSLIPIDAEMIA
     Dates: end: 20040601
  3. AVANDIA [Concomitant]
     Indication: GLUCOSE TOLERANCE IMPAIRED
  4. ZOCOR [Concomitant]
     Indication: DYSLIPIDAEMIA
     Dates: start: 20040601

REACTIONS (11)
  - ABDOMINAL PAIN [None]
  - ABSCESS INTESTINAL [None]
  - BLAST CELL COUNT INCREASED [None]
  - DIVERTICULITIS [None]
  - HAEMOGLOBIN DECREASED [None]
  - LYMPHOCYTE COUNT DECREASED [None]
  - MYELODYSPLASTIC SYNDROME [None]
  - NEUTROPHIL COUNT DECREASED [None]
  - PLATELET COUNT DECREASED [None]
  - REFRACTORY ANAEMIA [None]
  - WHITE BLOOD CELL COUNT DECREASED [None]
